FAERS Safety Report 8543372-9 (Version None)
Quarter: 2012Q3

REPORT INFORMATION
  Report Type: 
  Country: None (occurrence: None)
  Receive Date: 20120727
  Receipt Date: 20120717
  Transmission Date: 20120928
  Serious: Yes (Hospitalization, Other)
  Sender: FDA-Public Use
  Company Number: US-NOVOPROD-343883

PATIENT
  Age: 66 Year
  Sex: Female
  Weight: 63.492 kg

DRUGS (5)
  1. NOVOLOG [Suspect]
     Dosage: SLIDING SCALE
     Route: 058
     Dates: start: 20111231
  2. NOVOLOG [Suspect]
     Indication: TYPE 1 DIABETES MELLITUS
     Dosage: SLIDING SCALE
     Route: 058
     Dates: start: 20070101, end: 20111230
  3. ENALAPRIL MALEATE [Concomitant]
     Indication: PRODUCT USED FOR UNKNOWN INDICATION
  4. PRAVASTATIN [Concomitant]
     Indication: PRODUCT USED FOR UNKNOWN INDICATION
  5. ASPIRIN [Concomitant]
     Indication: PRODUCT USED FOR UNKNOWN INDICATION

REACTIONS (3)
  - ROAD TRAFFIC ACCIDENT [None]
  - DEVICE MALFUNCTION [None]
  - HYPOGLYCAEMIC UNCONSCIOUSNESS [None]
